FAERS Safety Report 21461412 (Version 1)
Quarter: 2022Q4

REPORT INFORMATION
  Report Type: Report from Study
  Country: US (occurrence: US)
  Receive Date: 20221015
  Receipt Date: 20221015
  Transmission Date: 20230112
  Serious: No
  Sender: FDA-Public Use
  Company Number: US-ABBVIE-4145061

PATIENT
  Age: 61 Year
  Sex: Female

DRUGS (3)
  1. HUMIRA [Suspect]
     Active Substance: ADALIMUMAB
     Indication: Rheumatoid arthritis
     Dosage: 40MG/0.4ML CITRATE FREE; FORM STRENGTH: 40 MILLIGRAM
     Route: 058
     Dates: start: 20220918, end: 20220918
  2. HUMIRA [Suspect]
     Active Substance: ADALIMUMAB
     Route: 058
     Dates: start: 20220911
  3. ENBREL [Suspect]
     Active Substance: ETANERCEPT
     Indication: Product used for unknown indication
     Route: 065

REACTIONS (7)
  - Nausea [Recovering/Resolving]
  - Headache [Recovering/Resolving]
  - Lymphadenopathy [Recovering/Resolving]
  - Rheumatoid arthritis [Recovering/Resolving]
  - Oropharyngeal pain [Unknown]
  - Pharyngeal swelling [Unknown]
  - Swelling [Unknown]

NARRATIVE: CASE EVENT DATE: 20220911
